FAERS Safety Report 24982596 (Version 3)
Quarter: 2025Q4

REPORT INFORMATION
  Report Type: Spontaneous
  Country: US (occurrence: US)
  Receive Date: 20250218
  Receipt Date: 20251224
  Transmission Date: 20260117
  Serious: Yes (Other)
  Sender: NOVARTIS
  Company Number: US-002147023-NVSC2025US027315

PATIENT
  Age: 73 Year
  Sex: Female

DRUGS (2)
  1. ZOMETA [Suspect]
     Active Substance: ZOLEDRONIC ACID
     Indication: Product used for unknown indication
     Dosage: UNK
     Route: 065
  2. IBRANCE [Suspect]
     Active Substance: PALBOCICLIB
     Indication: Product used for unknown indication
     Dosage: 125 MG, 28-DAY SUPPLY DOSING INSTRUCTIONS: TAKE 1 TABLET BY MOUTH DAILY. TAKE WITH OR WITHOUT FOOD D
     Route: 065

REACTIONS (3)
  - Breast cancer metastatic [Unknown]
  - Jaw disorder [Unknown]
  - Inappropriate schedule of product administration [Unknown]
